FAERS Safety Report 24678567 (Version 1)
Quarter: 2024Q4

REPORT INFORMATION
  Report Type: Spontaneous
  Country: BE (occurrence: BE)
  Receive Date: 20241129
  Receipt Date: 20241129
  Transmission Date: 20250114
  Serious: Yes (Other)
  Sender: ALKEM
  Company Number: BE-ALKEM LABORATORIES LIMITED-BE-ALKEM-2023-17129

PATIENT
  Age: 21 Year
  Sex: Female

DRUGS (8)
  1. ISONIAZID [Suspect]
     Active Substance: ISONIAZID
     Indication: Pulmonary tuberculosis
     Dosage: UNK
     Route: 065
  2. MYAMBUTOL [Suspect]
     Active Substance: ETHAMBUTOL HYDROCHLORIDE
     Indication: Pulmonary tuberculosis
     Dosage: UNK
     Route: 065
  3. RIFAMPIN [Suspect]
     Active Substance: RIFAMPIN
     Indication: Pulmonary tuberculosis
     Dosage: UNK, 10 PERCENT AQUEOUS
     Route: 023
  4. RIFAMPIN [Suspect]
     Active Substance: RIFAMPIN
     Dosage: 150 MILLIGRAM, QD
     Route: 065
  5. RIFAMPIN [Suspect]
     Active Substance: RIFAMPIN
     Dosage: 300 MILLIGRAM, QD
     Route: 065
  6. RIFAMPIN [Suspect]
     Active Substance: RIFAMPIN
     Dosage: 600 MILLIGRAM, QD
     Route: 065
  7. PYRAZINAMIDE [Suspect]
     Active Substance: PYRAZINAMIDE
     Indication: Pulmonary tuberculosis
     Dosage: UNK
     Route: 065
  8. PYRAZINAMIDE [Suspect]
     Active Substance: PYRAZINAMIDE
     Dosage: UNK, REINTRODUCED
     Route: 065

REACTIONS (1)
  - Drug reaction with eosinophilia and systemic symptoms [Recovered/Resolved]
